FAERS Safety Report 17088226 (Version 1)
Quarter: 2019Q4

REPORT INFORMATION
  Report Type: Report from Study
  Country: IN (occurrence: IN)
  Receive Date: 20191128
  Receipt Date: 20191128
  Transmission Date: 20200122
  Serious: Yes (Other)
  Sender: FDA-Public Use
  Company Number: IN-ROCHE-2422825

PATIENT
  Age: 57 Year
  Sex: Female

DRUGS (1)
  1. KADCYLA [Suspect]
     Active Substance: ADO-TRASTUZUMAB EMTANSINE
     Indication: BREAST CANCER METASTATIC
     Route: 042
     Dates: start: 20190508, end: 20191023

REACTIONS (6)
  - Pulmonary mass [Unknown]
  - Hypertension [Unknown]
  - General physical health deterioration [Unknown]
  - Drug intolerance [Unknown]
  - Pyrexia [Unknown]
  - Drug ineffective [Unknown]
